FAERS Safety Report 7487696-5 (Version None)
Quarter: 2011Q2

REPORT INFORMATION
  Report Type: 
  Country: None (occurrence: None)
  Receive Date: 20110518
  Receipt Date: 20110513
  Transmission Date: 20111010
  Serious: Yes (Death, Hospitalization)
  Sender: FDA-Public Use
  Company Number: JP-BAYER-201012642BYL

PATIENT
  Age: 51 Year
  Sex: Male
  Weight: 92 kg

DRUGS (19)
  1. CYTOTEC [Concomitant]
     Dosage: 600 ?G (DAILY DOSE), , ORAL
     Route: 048
     Dates: start: 20090803, end: 20100720
  2. RED BLOOD CELLS, CONCENTRATED [Concomitant]
     Route: 042
     Dates: start: 20100728, end: 20100728
  3. LEVOTHYROXINE SODIUM [Concomitant]
     Dosage: 150 ?G (DAILY DOSE), , ORAL
     Route: 048
     Dates: start: 20100419, end: 20100720
  4. RED BLOOD CELLS, CONCENTRATED [Concomitant]
     Route: 042
     Dates: start: 20100804, end: 20100804
  5. RED BLOOD CELLS, CONCENTRATED [Concomitant]
     Route: 042
     Dates: start: 20100608, end: 20100608
  6. RED BLOOD CELLS, CONCENTRATED [Concomitant]
     Route: 042
     Dates: start: 20100709, end: 20100709
  7. RED BLOOD CELLS, CONCENTRATED [Concomitant]
     Route: 042
     Dates: start: 20100802, end: 20100802
  8. RED BLOOD CELLS, CONCENTRATED [Concomitant]
     Dosage: UNK
     Route: 042
     Dates: start: 20090721, end: 20090721
  9. NEXAVAR [Suspect]
     Dosage: 800 MG (DAILY DOSE), , ORAL
     Route: 048
     Dates: start: 20091221, end: 20100503
  10. LOXONIN [Suspect]
     Indication: PRODUCT USED FOR UNKNOWN INDICATION
     Dosage: 180 MG (DAILY DOSE), , ORAL
     Route: 048
     Dates: start: 20090803, end: 20100518
  11. ZOLPIDEM [Concomitant]
     Dosage: 10 MG (DAILY DOSE), , ORAL
     Route: 048
     Dates: start: 20080616, end: 20080616
  12. FERO-GRADUMET [Concomitant]
     Dosage: 105 MG (DAILY DOSE), , ORAL
     Route: 048
     Dates: start: 20090821, end: 20100720
  13. RED BLOOD CELLS, CONCENTRATED [Concomitant]
     Route: 042
     Dates: start: 20100719, end: 20100719
  14. OMEPRAZOLE [Suspect]
     Indication: PRODUCT USED FOR UNKNOWN INDICATION
     Dosage: 20 MG (DAILY DOSE), , ORAL
     Route: 048
     Dates: start: 20090718, end: 20100720
  15. OXYCONTIN [Concomitant]
     Dosage: 10-80MG/DAY
     Route: 048
     Dates: start: 20090715, end: 20100727
  16. RED BLOOD CELLS, CONCENTRATED [Concomitant]
     Route: 042
     Dates: start: 20100611, end: 20100611
  17. NEXAVAR [Suspect]
     Indication: RENAL CELL CARCINOMA
     Dosage: 800 MG (DAILY DOSE), , ORAL
     Route: 048
     Dates: start: 20080611, end: 20090317
  18. CATLEP [Concomitant]
     Dosage: UNK UNK, PRN
     Route: 061
     Dates: start: 20080615, end: 20080630
  19. SUTENT [Concomitant]
     Dosage: 37.5-50MG/DAY
     Route: 048
     Dates: start: 20090319, end: 20091130

REACTIONS (4)
  - RENAL CELL CARCINOMA [None]
  - NEPHROTIC SYNDROME [None]
  - PALMAR ERYTHEMA [None]
  - ALOPECIA [None]
